FAERS Safety Report 9249394 (Version 2)
Quarter: 2013Q2

REPORT INFORMATION
  Report Type: Spontaneous
  Country: JP (occurrence: JP)
  Receive Date: 20130423
  Receipt Date: 20130503
  Transmission Date: 20140414
  Serious: Yes (Hospitalization)
  Sender: FDA-Public Use
  Company Number: JP-ELI_LILLY_AND_COMPANY-JP201304005143

PATIENT
  Age: 70 Year
  Sex: Female

DRUGS (11)
  1. HUMALOG 25% LISPRO, 75% NPL [Suspect]
     Indication: DIABETES MELLITUS
     Dosage: UNK
     Route: 058
     Dates: start: 20111108, end: 20130325
  2. CYMBALTA [Concomitant]
     Indication: FIBROMYALGIA
     Dosage: 20 MG, QD
     Route: 048
     Dates: start: 20120904, end: 20120910
  3. CYMBALTA [Concomitant]
     Dosage: 40 MG, QD
     Route: 048
     Dates: start: 20120911, end: 20120911
  4. CYMBALTA [Concomitant]
     Dosage: 60 MG, QD
     Route: 048
     Dates: start: 20120912
  5. CALONAL [Concomitant]
     Indication: FIBROMYALGIA
     Dosage: UNK
     Route: 048
     Dates: start: 20120903
  6. REBAMIPIDE [Concomitant]
     Indication: GASTROINTESTINAL MUCOSAL DISORDER
     Dosage: UNK
     Route: 048
     Dates: start: 20120514
  7. SEIBULE [Concomitant]
     Indication: DIABETES MELLITUS
     Dosage: UNK
     Route: 048
     Dates: start: 20120612, end: 20130325
  8. COSOPT [Concomitant]
     Indication: OCULAR HYPERTENSION
     Dosage: UNK
     Route: 047
     Dates: start: 20100622
  9. KARY UNI [Concomitant]
     Indication: CATARACT
     Dosage: UNK
     Route: 047
     Dates: start: 20100622
  10. ADONA [Concomitant]
     Indication: DIABETIC RETINOPATHY
     Dosage: UNK
     Route: 048
     Dates: start: 20090706
  11. BONALON [Concomitant]
     Indication: OSTEOPOROSIS
     Dosage: UNK
     Route: 048
     Dates: start: 201202

REACTIONS (1)
  - Diabetes mellitus inadequate control [Recovered/Resolved]
